FAERS Safety Report 6555348-1 (Version None)
Quarter: 2010Q1

REPORT INFORMATION
  Report Type: 
  Country: None (occurrence: None)
  Receive Date: 20100128
  Receipt Date: 20090618
  Transmission Date: 20100710
  Serious: No
  Sender: FDA-Public Use
  Company Number: A0792532A

PATIENT
  Age: 57 Year
  Sex: Female

DRUGS (2)
  1. WELLBUTRIN [Suspect]
     Indication: DRUG USE FOR UNKNOWN INDICATION
     Dosage: 2TAB UNKNOWN
     Route: 065
  2. NICOTINE [Suspect]
     Indication: SMOKING CESSATION THERAPY
     Dosage: 21MG PER DAY
     Dates: start: 20090602

REACTIONS (1)
  - NAUSEA [None]
